FAERS Safety Report 12737110 (Version 2)
Quarter: 2016Q3

REPORT INFORMATION
  Report Type: Spontaneous
  Country: US (occurrence: US)
  Receive Date: 20160913
  Receipt Date: 20160922
  Transmission Date: 20161109
  Serious: Yes (Death)
  Sender: FDA-Public Use
  Company Number: US-BIOVITRUM-2016US0709

PATIENT
  Sex: Male

DRUGS (2)
  1. KINERET [Suspect]
     Active Substance: ANAKINRA
     Indication: ERDHEIM-CHESTER DISEASE
  2. STEROIDS [Concomitant]
     Active Substance: UNSPECIFIED INGREDIENT
     Indication: ERDHEIM-CHESTER DISEASE

REACTIONS (2)
  - Sepsis [Fatal]
  - Intestinal perforation [Fatal]

NARRATIVE: CASE EVENT DATE: 2014
